FAERS Safety Report 7119312-6 (Version None)
Quarter: 2010Q4

REPORT INFORMATION
  Report Type: 
  Country: None (occurrence: None)
  Receive Date: 20101123
  Receipt Date: 20101116
  Transmission Date: 20110411
  Serious: Yes (Hospitalization, Other)
  Sender: FDA-Public Use
  Company Number: US-AMGEN-USASP2010003521

PATIENT

DRUGS (4)
  1. NPLATE [Suspect]
     Indication: IDIOPATHIC THROMBOCYTOPENIC PURPURA
     Dosage: 3 A?G/KG, UNK
     Dates: start: 20091223, end: 20100126
  2. WINRHO [Concomitant]
  3. PLATELETS [Concomitant]
  4. RED BLOOD CELLS [Concomitant]

REACTIONS (3)
  - CONTUSION [None]
  - DRUG INEFFECTIVE [None]
  - THROMBOCYTOPENIA [None]
